FAERS Safety Report 24168953 (Version 2)
Quarter: 2024Q3

REPORT INFORMATION
  Report Type: Spontaneous
  Country: US (occurrence: US)
  Receive Date: 20240802
  Receipt Date: 20240821
  Transmission Date: 20241016
  Serious: No
  Sender: PFIZER
  Company Number: US-PFIZER INC-PV202400089326

PATIENT
  Age: 74 Year
  Sex: Male
  Weight: 68.027 kg

DRUGS (3)
  1. INLYTA [Suspect]
     Active Substance: AXITINIB
     Indication: Renal cancer metastatic
     Dosage: 5 MG, 2X/DAY
     Route: 048
     Dates: start: 2020
  2. INLYTA [Suspect]
     Active Substance: AXITINIB
     Indication: Metastases to liver
     Dosage: 5 MG, 1X/DAY
     Route: 048
  3. INLYTA [Suspect]
     Active Substance: AXITINIB
     Dosage: 0.5 DF, 1X/DAY (1/2 A PILL PER DAY FOR A WEEK AND NOTHING THE FOLLOWING WEEK)
     Route: 048
     Dates: start: 20230101

REACTIONS (9)
  - Hypersomnia [Unknown]
  - Malaise [Unknown]
  - Illness [Unknown]
  - White blood cell count decreased [Unknown]
  - Fatigue [Unknown]
  - Myalgia [Unknown]
  - Nausea [Unknown]
  - Wrong technique in product usage process [Unknown]
  - Intentional product use issue [Unknown]

NARRATIVE: CASE EVENT DATE: 20230101
